FAERS Safety Report 6684009-3 (Version None)
Quarter: 2010Q2

REPORT INFORMATION
  Report Type: 
  Country: None (occurrence: None)
  Receive Date: 20100416
  Receipt Date: 20100406
  Transmission Date: 20101027
  Serious: Yes (Other)
  Sender: FDA-Public Use
  Company Number: US-PFIZER INC-2010044152

PATIENT
  Sex: Female
  Weight: 90 kg

DRUGS (3)
  1. ZYVOX [Suspect]
     Indication: CELLULITIS
     Dosage: 600 MG, 2X/DAY
     Route: 048
     Dates: start: 20100401, end: 20100406
  2. LEVAQUIN [Suspect]
     Indication: ESCHERICHIA INFECTION
     Dosage: 250 MG, DAILY
  3. DRUG, UNSPECIFIED [Concomitant]

REACTIONS (8)
  - ABDOMINAL PAIN UPPER [None]
  - COGNITIVE DISORDER [None]
  - DIARRHOEA [None]
  - GASTROINTESTINAL PAIN [None]
  - MALAISE [None]
  - MUSCLE SPASMS [None]
  - PAIN [None]
  - VOMITING [None]
